FAERS Safety Report 4661495-1 (Version None)
Quarter: 2005Q2

REPORT INFORMATION
  Report Type: 
  Country: None (occurrence: None)
  Receive Date: 20050511
  Receipt Date: 20050427
  Transmission Date: 20051028
  Serious: Yes (Life-Threatening, Hospitalization)
  Sender: FDA-Public Use
  Company Number: 200510327BFR

PATIENT
  Age: 54 Year
  Sex: Male

DRUGS (1)
  1. MOXIFLOXACIN HYDROCHLORIDE [Suspect]
     Indication: SINUSITIS
     Dosage: 400 MG, TOTAL DAILY, ORAL
     Route: 048
     Dates: start: 20050415

REACTIONS (3)
  - ANAPHYLACTIC SHOCK [None]
  - BRADYCARDIA [None]
  - RASH [None]
